FAERS Safety Report 6470006-X (Version None)
Quarter: 2009Q4

REPORT INFORMATION
  Report Type: 
  Country: None (occurrence: None)
  Receive Date: 20091203
  Receipt Date: 20091119
  Transmission Date: 20100525
  Serious: Yes (Other)
  Sender: FDA-Public Use
  Company Number: DE-PFIZER INC-2009304548

PATIENT
  Age: 36 Year
  Sex: Male

DRUGS (3)
  1. ATARAX [Suspect]
     Route: 048
  2. CIPRALEX [Suspect]
     Route: 048
  3. ALCOHOL [Suspect]
     Route: 048

REACTIONS (2)
  - SOMNOLENCE [None]
  - SUICIDE ATTEMPT [None]
